FAERS Safety Report 26114792 (Version 1)
Quarter: 2025Q4

REPORT INFORMATION
  Report Type: Spontaneous
  Country: GB (occurrence: GB)
  Receive Date: 20251203
  Receipt Date: 20251203
  Transmission Date: 20260117
  Serious: Yes (Other)
  Sender: GLAXOSMITHKLINE
  Company Number: None

PATIENT
  Sex: Female

DRUGS (1)
  1. ALBUTEROL [Suspect]
     Active Substance: ALBUTEROL
     Indication: Investigation
     Dosage: UNK (2.5MG/2.5ML VIA NEBULISER WITHIN CLINICAL ENVIRONMENT FOR BRONCHODILATOR RESPONSIVENESS TEST)
     Route: 065

REACTIONS (3)
  - Sensory loss [Recovered/Resolved]
  - Dizziness [Recovered/Resolved]
  - Paraesthesia [Unknown]

NARRATIVE: CASE EVENT DATE: 20251030
